FAERS Safety Report 25230463 (Version 1)
Quarter: 2025Q2

REPORT INFORMATION
  Report Type: Spontaneous
  Country: US (occurrence: US)
  Receive Date: 20250423
  Receipt Date: 20250423
  Transmission Date: 20250717
  Serious: No
  Sender: SYMOGEN
  Company Number: US-PARTNER THERAPEUTICS-2024PTX04094

PATIENT
  Sex: Male

DRUGS (3)
  1. LEUKINE [Suspect]
     Active Substance: SARGRAMOSTIM
     Indication: Adrenal gland cancer
     Dosage: 250 MCG, 1X/DAY (ADMINISTER AT HOME ON DAYS 6 THROUGH 10 OF 21 DAY CYCLE)
     Route: 058
     Dates: start: 20231205
  2. LEUKINE [Suspect]
     Active Substance: SARGRAMOSTIM
     Dosage: 250 UG, 1X/DAY
     Route: 058
  3. STERILE WATER [Concomitant]
     Active Substance: WATER

REACTIONS (3)
  - Illness [Unknown]
  - Retching [Unknown]
  - Off label use [Unknown]
